FAERS Safety Report 4887835-6 (Version None)
Quarter: 2006Q1

REPORT INFORMATION
  Report Type: 
  Country: None (occurrence: None)
  Receive Date: 20060123
  Receipt Date: 20050406
  Transmission Date: 20060701
  Serious: Yes (Death, Hospitalization)
  Sender: FDA-Public Use
  Company Number: US-MERCK-0504USA01043

PATIENT
  Age: 59 Year
  Sex: Male
  Weight: 120 kg

DRUGS (5)
  1. VIOXX [Suspect]
     Indication: ARTHRITIS
     Route: 048
     Dates: start: 20010201, end: 20010525
  2. WARFARIN [Concomitant]
     Route: 065
  3. LANOXIN [Concomitant]
     Route: 065
  4. DIOVAN [Concomitant]
     Route: 065
  5. ATENOLOL [Concomitant]
     Route: 065

REACTIONS (11)
  - ARTERIOSCLEROSIS [None]
  - ASTHENIA [None]
  - BRAIN DEATH [None]
  - CARDIAC FAILURE CONGESTIVE [None]
  - CEREBROVASCULAR ACCIDENT [None]
  - COMA [None]
  - HYPERTENSIVE EMERGENCY [None]
  - MYOCARDIAL ISCHAEMIA [None]
  - PNEUMONIA ASPIRATION [None]
  - RESPIRATORY FAILURE [None]
  - TRANSIENT ISCHAEMIC ATTACK [None]
